FAERS Safety Report 25513601 (Version 1)
Quarter: 2025Q3

REPORT INFORMATION
  Report Type: Spontaneous
  Country: US (occurrence: US)
  Receive Date: 20250703
  Receipt Date: 20250703
  Transmission Date: 20251020
  Serious: No
  Sender: RADIUS PHARM
  Company Number: US-RADIUS HEALTH INC.-2024US009283

PATIENT
  Age: 43 Year
  Sex: Female
  Weight: 72.109 kg

DRUGS (2)
  1. TYMLOS [Suspect]
     Active Substance: ABALOPARATIDE
     Indication: Senile osteoporosis
     Route: 058
     Dates: start: 20241108
  2. LISINOPRIL [Concomitant]
     Active Substance: LISINOPRIL
     Indication: Product used for unknown indication

REACTIONS (8)
  - Blood pressure decreased [Not Recovered/Not Resolved]
  - Loss of personal independence in daily activities [Unknown]
  - Nausea [Unknown]
  - Presyncope [Unknown]
  - Malaise [Unknown]
  - Dizziness [Unknown]
  - Back pain [Unknown]
  - Sleep disorder [Unknown]

NARRATIVE: CASE EVENT DATE: 20041101
